FAERS Safety Report 22324445 (Version 2)
Quarter: 2023Q2

REPORT INFORMATION
  Report Type: Spontaneous
  Country: US (occurrence: US)
  Receive Date: 20230516
  Receipt Date: 20230614
  Transmission Date: 20230721
  Serious: No
  Sender: FDA-Public Use
  Company Number: US-PFIZER INC-202300186740

PATIENT
  Age: 13 Year
  Sex: Female
  Weight: 31.75 kg

DRUGS (4)
  1. SOMATROPIN [Suspect]
     Active Substance: SOMATROPIN
     Indication: Growth hormone deficiency
     Dosage: 1 MILLIGRAM, ONCE A DAY
     Route: 058
  2. PHOSPHA 250 NEUTRAL [Concomitant]
     Active Substance: POTASSIUM PHOSPHATE, MONOBASIC\SODIUM PHOSPHATE, DIBASIC, ANHYDROUS\SODIUM PHOSPHATE, MONOBASIC, MON
     Dosage: 250 MG, 3X/DAY
  3. PHYTONADIONE [Concomitant]
     Active Substance: PHYTONADIONE
     Dosage: 5 MG, DAILY
  4. LOPERAMIDE [Concomitant]
     Active Substance: LOPERAMIDE
     Dosage: 2 MG

REACTIONS (2)
  - Device delivery system issue [Unknown]
  - Poor quality device used [Unknown]
